FAERS Safety Report 7714747-2 (Version None)
Quarter: 2011Q3

REPORT INFORMATION
  Report Type: 
  Country: None (occurrence: None)
  Receive Date: 20110804
  Receipt Date: 20101230
  Transmission Date: 20111222
  Serious: Yes (Other)
  Sender: FDA-Public Use
  Company Number: DSU-2010-07305

PATIENT
  Age: 38 Year
  Sex: Male

DRUGS (2)
  1. DIOVAN HCT (HYDROCHLOROTHIAZIDE, VALSARTAN) (TABLET) (HYDROCHLOROTHIAZ [Concomitant]
  2. BENICAR HCT [Suspect]
     Indication: PRODUCT USED FOR UNKNOWN INDICATION
     Dosage: PER ORAL
     Route: 048

REACTIONS (1)
  - ANAPHYLACTIC REACTION [None]
